FAERS Safety Report 21526637 (Version 1)
Quarter: 2022Q4

REPORT INFORMATION
  Report Type: Spontaneous
  Country: DE (occurrence: None)
  Receive Date: 20221031
  Receipt Date: 20221031
  Transmission Date: 20230113
  Serious: Yes (Congenital Anomaly, Other)
  Sender: FDA-Public Use
  Company Number: DE-MICRO LABS LIMITED-ML2022-05279

PATIENT
  Sex: Male

DRUGS (1)
  1. DICLOFENAC [Suspect]
     Active Substance: DICLOFENAC
     Indication: Foetal exposure during pregnancy
     Dosage: EXPOSED FROM GW 33+3 TO GW 33+4
     Route: 064

REACTIONS (4)
  - Ductus arteriosus stenosis foetal [Recovered/Resolved]
  - Tricuspid valve incompetence [Recovered/Resolved]
  - Cardiomegaly [Recovered/Resolved]
  - Foetal exposure during pregnancy [Unknown]
